FAERS Safety Report 10965574 (Version 3)
Quarter: 2015Q4

REPORT INFORMATION
  Report Type: Spontaneous
  Country: JP (occurrence: JP)
  Receive Date: 20150330
  Receipt Date: 20151102
  Transmission Date: 20160304
  Serious: Yes (Death, Life-Threatening, Hospitalization)
  Sender: FDA-Public Use
  Company Number: JP-TEVA-549979ISR

PATIENT
  Age: 73 Year
  Sex: Female

DRUGS (21)
  1. FILGRASTIM BS INJ. NK [Suspect]
     Active Substance: FILGRASTIM
     Indication: NEUTROPENIA
     Dosage: 63 MICROGRAM/M2 DAILY;
     Route: 058
     Dates: start: 20141104, end: 20141109
  2. ENDOXAN [Suspect]
     Active Substance: CYCLOPHOSPHAMIDE
     Dosage: 400 MILLIGRAM DAILY;
     Route: 042
     Dates: start: 20150129
  3. FILDESIN [Concomitant]
     Active Substance: VINDESINE SULFATE
     Indication: NON-HODGKIN^S LYMPHOMA
     Dosage: 1 MILLIGRAM DAILY; 02/OCT/2014, 27/OCT/2014
     Route: 042
     Dates: start: 20141002
  4. LASTET [Suspect]
     Active Substance: ETOPOSIDE
     Indication: NON-HODGKIN^S LYMPHOMA RECURRENT
     Dosage: 50 MILLIGRAM DAILY; 21/NOV/2014, 17/DEC AND 29/JAN/2015
     Route: 042
  5. PREDONINE [Concomitant]
     Active Substance: PREDNISOLONE\PREDNISOLONE ACETATE\PREDNISOLONE SODIUM SUCCINATE
     Indication: NON-HODGKIN^S LYMPHOMA
     Dosage: 40 MILLIGRAM DAILY;
     Route: 042
     Dates: start: 20141121
  6. FOSAMAC [Concomitant]
     Active Substance: ALENDRONATE SODIUM
     Indication: OSTEOPOROSIS
     Dosage: 35 MILLIGRAM DAILY;
     Route: 048
     Dates: start: 20131206, end: 20150103
  7. ALTAT [Concomitant]
     Indication: PROPHYLAXIS
     Dosage: 75 MILLIGRAM DAILY;
     Route: 042
     Dates: start: 20150130
  8. FILGRASTIM BS INJ. NK [Suspect]
     Active Substance: FILGRASTIM
     Dosage: 63 MICROGRAM/M2 DAILY;
     Route: 058
     Dates: start: 20141011, end: 20141015
  9. FILGRASTIM BS INJ. NK [Suspect]
     Active Substance: FILGRASTIM
     Dosage: 63 MICROGRAM/M2 DAILY;
     Route: 058
     Dates: start: 20141224, end: 20141229
  10. GRAMALIL [Concomitant]
     Active Substance: TIAPRIDE HYDROCHLORIDE
     Indication: CEREBELLAR HAEMORRHAGE
     Dosage: 25 MILLIGRAM DAILY;
     Route: 048
     Dates: start: 20130907, end: 20150107
  11. ALOXI [Concomitant]
     Active Substance: PALONOSETRON HYDROCHLORIDE
     Indication: PROPHYLAXIS
     Dosage: .75 MILLIGRAM DAILY; 02/OCT/2014, 27/OCT/2014, 21/NOV, 17/DEC AND 29/JAN/2015
     Route: 042
  12. MAGMITT [Concomitant]
     Active Substance: MAGNESIUM OXIDE
     Indication: CONSTIPATION
     Dosage: 1500 MILLIGRAM DAILY;
     Route: 048
     Dates: start: 20130907, end: 20150107
  13. LANSOPRAZOLE OD TABLETS TEVA [Concomitant]
     Indication: PROPHYLAXIS
     Dosage: 15 MILLIGRAM DAILY;
     Route: 048
     Dates: start: 20130907, end: 20150107
  14. SERENACE [Concomitant]
     Active Substance: HALOPERIDOL
     Indication: DELIRIUM
     Dosage: 5 MILLIGRAM DAILY; 15/OCT/2014 AND 05/NOV
     Route: 030
  15. FILGRASTIM BS INJ. NK [Suspect]
     Active Substance: FILGRASTIM
     Dosage: 63 MICROGRAM/M2 DAILY;
     Route: 058
     Dates: start: 20141129, end: 20141204
  16. THERARUBICIN [Suspect]
     Active Substance: PIRARUBICIN HYDROCHLORIDE
     Indication: NON-HODGKIN^S LYMPHOMA RECURRENT
     Dosage: 30 MILLIGRAM DAILY; 02/OCT/2014, 27/OCT/2014, 21/NOV, 17/DEC AND 29/JAN/2015
     Route: 042
  17. BAKTAR [Concomitant]
     Active Substance: SULFAMETHOXAZOLE\TRIMETHOPRIM
     Indication: PROPHYLAXIS
     Dosage: 1 GRAM DAILY;
     Route: 048
     Dates: start: 20141109, end: 20150107
  18. ENDOXAN [Suspect]
     Active Substance: CYCLOPHOSPHAMIDE
     Indication: NON-HODGKIN^S LYMPHOMA RECURRENT
     Dosage: 500 MILLIGRAM DAILY; 02/OCT/2014, 27/OCT/2014, 21/NOV AND 17/DEC
     Route: 042
  19. PREDONINE [Concomitant]
     Active Substance: PREDNISOLONE\PREDNISOLONE ACETATE\PREDNISOLONE SODIUM SUCCINATE
     Dosage: 30 MILLIGRAM DAILY;
     Route: 042
     Dates: start: 20150129, end: 20150131
  20. BARACLUDE [Concomitant]
     Active Substance: ENTECAVIR
     Indication: PROPHYLAXIS
     Dosage: .5 MILLIGRAM DAILY;
     Route: 048
     Dates: start: 20130906, end: 20150107
  21. PURSENNID [Concomitant]
     Active Substance: SENNOSIDES A AND B
     Indication: CONSTIPATION
     Dosage: 24 MILLIGRAM DAILY;
     Route: 048
     Dates: start: 20130930, end: 20150107

REACTIONS (4)
  - Tumour associated fever [Fatal]
  - C-reactive protein increased [Not Recovered/Not Resolved]
  - Febrile neutropenia [Recovered/Resolved]
  - Decreased appetite [Fatal]

NARRATIVE: CASE EVENT DATE: 20150107
